FAERS Safety Report 5454252-X (Version None)
Quarter: 2007Q3

REPORT INFORMATION
  Report Type: 
  Country: None (occurrence: None)
  Receive Date: 20070803
  Receipt Date: 20070220
  Transmission Date: 20080115
  Serious: Yes (Other)
  Sender: FDA-Public Use
  Company Number: 2007SP003295

PATIENT
  Sex: Female

DRUGS (1)
  1. INTRON A [Suspect]
     Indication: MALIGNANT MELANOMA
     Dosage: ;TIW;SC
     Route: 058
     Dates: start: 20051001, end: 20061001

REACTIONS (3)
  - ARTHRITIS [None]
  - HAIR TEXTURE ABNORMAL [None]
  - NEUROPATHY [None]
